FAERS Safety Report 12799917 (Version 1)
Quarter: 2016Q3

REPORT INFORMATION
  Report Type: Spontaneous
  Country: US (occurrence: US)
  Receive Date: 20160930
  Receipt Date: 20160930
  Transmission Date: 20161109
  Serious: No
  Sender: FDA-Public Use
  Company Number: US-TEVA-696840USA

PATIENT
  Age: 59 Year
  Sex: Female

DRUGS (11)
  1. METHENAMINE [Concomitant]
     Active Substance: METHENAMINE
  2. TIZANIDINE. [Concomitant]
     Active Substance: TIZANIDINE
  3. FLOMAX [Concomitant]
     Active Substance: TAMSULOSIN HYDROCHLORIDE
  4. ACTONEL [Concomitant]
     Active Substance: RISEDRONATE SODIUM
  5. AMPYRA [Suspect]
     Active Substance: DALFAMPRIDINE
     Route: 065
  6. BETHANECHOL [Concomitant]
     Active Substance: BETHANECHOL
  7. ATORVASTATIN [Concomitant]
     Active Substance: ATORVASTATIN
  8. VESICARE [Concomitant]
     Active Substance: SOLIFENACIN SUCCINATE
  9. COPAXONE [Suspect]
     Active Substance: GLATIRAMER ACETATE
     Indication: MULTIPLE SCLEROSIS
     Route: 058
  10. FLOMAX [Concomitant]
     Active Substance: TAMSULOSIN HYDROCHLORIDE
  11. BUPROPION. [Concomitant]
     Active Substance: BUPROPION

REACTIONS (1)
  - Somnolence [Unknown]

NARRATIVE: CASE EVENT DATE: 201608
